FAERS Safety Report 20367140 (Version 1)
Quarter: 2022Q1

REPORT INFORMATION
  Report Type: Spontaneous
  Country: US (occurrence: US)
  Receive Date: 20220123
  Receipt Date: 20220123
  Transmission Date: 20220423
  Serious: No
  Sender: FDA-Public Use
  Company Number: US-BRACCO-2020US05049

PATIENT
  Age: 52 Year
  Sex: Female

DRUGS (2)
  1. CARDIOGEN-82 [Suspect]
     Active Substance: RUBIDIUM CHLORIDE RB-82
     Indication: Positron emission tomogram
     Dosage: 22.1 MCI, SINGLE, 10:58 AM
     Route: 042
     Dates: start: 20201113, end: 20201113
  2. CARDIOGEN-82 [Suspect]
     Active Substance: RUBIDIUM CHLORIDE RB-82
     Indication: Positron emission tomogram
     Dosage: 22 MCI, SINGLE AT 11:10 AM
     Route: 042
     Dates: start: 20201113, end: 20201113

REACTIONS (1)
  - Positron emission tomogram abnormal [Unknown]

NARRATIVE: CASE EVENT DATE: 20201113
